FAERS Safety Report 8613910-6 (Version None)
Quarter: 2012Q3

REPORT INFORMATION
  Report Type: 
  Country: None (occurrence: None)
  Receive Date: 20120823
  Receipt Date: 20120810
  Transmission Date: 20120928
  Serious: Yes (Other)
  Sender: FDA-Public Use
  Company Number: JP-009507513-1208JPN006140

PATIENT

DRUGS (2)
  1. PEG-INTRON [Suspect]
     Dosage: UNK
     Route: 058
  2. REBETOL [Suspect]
     Route: 048

REACTIONS (1)
  - MYELODYSPLASTIC SYNDROME [None]
